FAERS Safety Report 7626800-2 (Version None)
Quarter: 2011Q3

REPORT INFORMATION
  Report Type: 
  Country: None (occurrence: None)
  Receive Date: 20110721
  Receipt Date: 20110706
  Transmission Date: 20111222
  Serious: Yes (Hospitalization, Other)
  Sender: FDA-Public Use
  Company Number: US-BAYER-2011-033372

PATIENT
  Age: 29 Year
  Sex: Female
  Weight: 65.76 kg

DRUGS (5)
  1. AUGMENTIN '125' [Concomitant]
     Indication: PARONYCHIA
     Dosage: 875 MG, BID
     Dates: start: 20100209, end: 20100212
  2. YASMIN [Suspect]
  3. OMEPRAZOLE [Concomitant]
     Dosage: 20 MG, QD
     Route: 048
     Dates: start: 20091208
  4. KETOCONAZOLE [Concomitant]
     Indication: PARONYCHIA
     Dosage: 2 %, BID
     Route: 061
     Dates: start: 20100209
  5. DROSPIRENONE AND ETHINYL ESTRADIOL [Suspect]
     Indication: CONTRACEPTION
     Dosage: UNK
     Dates: start: 20070101, end: 20090101

REACTIONS (3)
  - GALLBLADDER DISORDER [None]
  - PAIN [None]
  - CHOLECYSTITIS CHRONIC [None]
